FAERS Safety Report 24227370 (Version 1)
Quarter: 2024Q3

REPORT INFORMATION
  Report Type: Spontaneous
  Country: US (occurrence: US)
  Receive Date: 20240820
  Receipt Date: 20240820
  Transmission Date: 20241016
  Serious: No
  Sender: FRESENIUS MEDICAL CARE
  Company Number: US-FMCRTG-FMC-2407-000856

PATIENT
  Age: 80 Year
  Sex: Male
  Weight: 89 kg

DRUGS (2)
  1. DELFLEX WITH DEXTROSE 1.5% LOW MAGNESIUM LOW CALCIUM [Suspect]
     Active Substance: CALCIUM CHLORIDE\DEXTROSE\MAGNESIUM CHLORIDE\SODIUM CHLORIDE\SODIUM LACTATE
     Indication: End stage renal disease
     Dosage: 2200 ML FOR 4 CYCLES WITH NO LAST FILL OR DAYTIME EXCHANGE
     Route: 033
  2. DELFLEX WITH DEXTROSE 2.5% LOW MAGNESIUM LOW CALCIUM [Suspect]
     Active Substance: CALCIUM CHLORIDE\DEXTROSE\MAGNESIUM CHLORIDE\SODIUM CHLORIDE\SODIUM LACTATE
     Indication: End stage renal disease
     Dosage: 2200 ML FOR 4 CYCLES WITH NO LAST FILL OR DAYTIME EXCHANGE
     Route: 033

REACTIONS (1)
  - Umbilical hernia [Unknown]
